FAERS Safety Report 12344760 (Version 3)
Quarter: 2016Q3

REPORT INFORMATION
  Report Type: Spontaneous
  Country: US (occurrence: US)
  Receive Date: 20160507
  Receipt Date: 20160912
  Transmission Date: 20161109
  Serious: Yes (Hospitalization)
  Sender: FDA-Public Use
  Company Number: US-JNJFOC-20160415833

PATIENT
  Age: 58 Year
  Sex: Male

DRUGS (3)
  1. XARELTO [Suspect]
     Active Substance: RIVAROXABAN
     Indication: ATRIAL FIBRILLATION
     Dosage: 15 MG TO 20 MG
     Route: 048
     Dates: start: 20140802, end: 20141106
  2. XARELTO [Suspect]
     Active Substance: RIVAROXABAN
     Indication: CEREBROVASCULAR ACCIDENT PROPHYLAXIS
     Dosage: 15 MG TO 20 MG
     Route: 048
     Dates: start: 20140802, end: 20141106
  3. XARELTO [Suspect]
     Active Substance: RIVAROXABAN
     Indication: THROMBOSIS PROPHYLAXIS
     Dosage: 15 MG TO 20 MG
     Route: 048
     Dates: start: 20140802, end: 20141106

REACTIONS (2)
  - Incision site haemorrhage [Recovered/Resolved]
  - Chest wall haematoma [Unknown]

NARRATIVE: CASE EVENT DATE: 20140921
